FAERS Safety Report 16835023 (Version 6)
Quarter: 2020Q3

REPORT INFORMATION
  Report Type: Spontaneous
  Country: US (occurrence: US)
  Receive Date: 20190920
  Receipt Date: 20200720
  Transmission Date: 20201102
  Serious: Yes (Other)
  Sender: FDA-Public Use
  Company Number: US-SA-2019SA237322

PATIENT

DRUGS (5)
  1. CLOBETASOL [Concomitant]
     Active Substance: CLOBETASOL
  2. LUMIGAN [Concomitant]
     Active Substance: BIMATOPROST
     Route: 047
  3. DUPIXENT [Suspect]
     Active Substance: DUPILUMAB
     Dosage: 300 MG, QOW
     Route: 058
     Dates: start: 2019
  4. TACROLIMUS. [Concomitant]
     Active Substance: TACROLIMUS
  5. DUPIXENT [Suspect]
     Active Substance: DUPILUMAB
     Indication: DERMATITIS ATOPIC
     Dosage: 600 MG, 1X
     Route: 058
     Dates: start: 20190816, end: 20190816

REACTIONS (6)
  - Fatigue [Unknown]
  - Pruritus [Unknown]
  - Seborrhoeic dermatitis [Not Recovered/Not Resolved]
  - Condition aggravated [Not Recovered/Not Resolved]
  - Peripheral swelling [Unknown]
  - Waldenstrom^s macroglobulinaemia [Unknown]

NARRATIVE: CASE EVENT DATE: 2019
